FAERS Safety Report 6385991-4 (Version None)
Quarter: 2009Q4

REPORT INFORMATION
  Report Type: 
  Country: None (occurrence: None)
  Receive Date: 20091002
  Receipt Date: 20081111
  Transmission Date: 20100525
  Serious: No
  Sender: FDA-Public Use
  Company Number: US-ASTRAZENECA-2008UW25224

PATIENT
  Age: 45 Year
  Sex: Female
  Weight: 79.4 kg

DRUGS (3)
  1. ARIMIDEX [Suspect]
     Indication: BREAST CANCER
     Route: 048
  2. L-THYROXIN [Concomitant]
  3. LEXAPRO [Concomitant]

REACTIONS (4)
  - ANXIETY [None]
  - ENURESIS [None]
  - FEELING JITTERY [None]
  - MIDDLE INSOMNIA [None]
